FAERS Safety Report 6011357-2 (Version None)
Quarter: 2008Q4

REPORT INFORMATION
  Report Type: 
  Country: None (occurrence: None)
  Receive Date: 20081218
  Receipt Date: 20081203
  Transmission Date: 20090506
  Serious: Yes (Hospitalization)
  Sender: FDA-Public Use
  Company Number: FR-PFIZER INC-2008151343

PATIENT

DRUGS (1)
  1. SULFASALAZINE [Suspect]

REACTIONS (2)
  - LYMPHADENOPATHY [None]
  - PYREXIA [None]
